FAERS Safety Report 22286833 (Version 1)
Quarter: 2023Q2

REPORT INFORMATION
  Report Type: Spontaneous
  Country: IT (occurrence: IT)
  Receive Date: 20230505
  Receipt Date: 20230505
  Transmission Date: 20230721
  Serious: Yes (Other)
  Sender: FDA-Public Use
  Company Number: IT-MINISAL02-920653

PATIENT
  Age: 77 Year
  Sex: Male

DRUGS (8)
  1. ONDANSETRON [Interacting]
     Active Substance: ONDANSETRON
     Indication: Product used for unknown indication
     Dosage: 4 MILLIGRAM
     Route: 042
     Dates: start: 20221010
  2. CHLORPHENIRAMINE MALEATE [Interacting]
     Active Substance: CHLORPHENIRAMINE MALEATE
     Indication: Product used for unknown indication
     Dosage: 10 MILLIGRAM
     Route: 042
     Dates: start: 20221010
  3. DEXAMETHASONE [Interacting]
     Active Substance: DEXAMETHASONE
     Indication: Product used for unknown indication
     Dosage: 8 MILLIGRAM
     Route: 042
     Dates: start: 20221010
  4. FLUOROURACIL [Suspect]
     Active Substance: FLUOROURACIL
     Indication: Rectal adenocarcinoma
     Dosage: 700 MILLIGRAM (14 DAY)(INTRAVENOUS ADMINISTRATION: - 700 MG BOLUS INJECTION - 4000 MG ELASTOMER INFU
     Route: 042
     Dates: start: 20221010, end: 20230117
  5. FLUOROURACIL [Suspect]
     Active Substance: FLUOROURACIL
     Dosage: 4000 MILLIGRAM (DAY 14)(INTRAVENOUS ADMINISTRATION: - 700 MG BOLUS INJECTION - 4000 MG ELASTOMER INF
     Route: 042
     Dates: start: 20221010, end: 20230117
  6. LEUCOVORIN [Interacting]
     Active Substance: LEUCOVORIN
     Indication: Product used for unknown indication
     Dosage: 350 MILLIGRAM (14 DAY)
     Route: 042
     Dates: start: 20221010, end: 20230117
  7. MVASI [Suspect]
     Active Substance: BEVACIZUMAB-AWWB
     Indication: Rectal adenocarcinoma
     Dosage: 390 MILLIGRAM (DAY 14)
     Route: 042
     Dates: start: 20221010, end: 20230117
  8. OXALIPLATIN [Suspect]
     Active Substance: OXALIPLATIN
     Indication: Rectal adenocarcinoma
     Dosage: 140 MILLIGRAM (14 DAY)
     Route: 042
     Dates: start: 20221010, end: 20230117

REACTIONS (1)
  - Thrombocytopenia [Recovered/Resolved]

NARRATIVE: CASE EVENT DATE: 20230131
